FAERS Safety Report 7559913-4 (Version None)
Quarter: 2011Q2

REPORT INFORMATION
  Report Type: 
  Country: None (occurrence: None)
  Receive Date: 20110621
  Receipt Date: 20110607
  Transmission Date: 20111010
  Serious: Yes (Hospitalization)
  Sender: FDA-Public Use
  Company Number: PHHY2011SK51474

PATIENT
  Age: 78 Year
  Sex: Female

DRUGS (1)
  1. ZOLEDRONIC ACID [Suspect]
     Dosage: 5 MG, UNK
     Route: 042
     Dates: start: 20110519

REACTIONS (4)
  - TRANSIENT ISCHAEMIC ATTACK [None]
  - ASTHENIA [None]
  - DYSARTHRIA [None]
  - MUSCULAR WEAKNESS [None]
